FAERS Safety Report 10566177 (Version 5)
Quarter: 2015Q1

REPORT INFORMATION
  Report Type: Spontaneous
  Country: NZ (occurrence: NZ)
  Receive Date: 20141105
  Receipt Date: 20150127
  Transmission Date: 20150720
  Serious: Yes (Hospitalization, Other)
  Sender: FDA-Public Use
  Company Number: NZ-PFIZER INC-2014303968

PATIENT
  Age: 28 Year
  Sex: Female
  Weight: 68.5 kg

DRUGS (2)
  1. DOXYCYCLINE HYCLATE. [Suspect]
     Active Substance: DOXYCYCLINE HYCLATE
     Indication: ACNE
     Dosage: 100 MG, DAILY
     Route: 048
     Dates: start: 20141016, end: 20141104
  2. NORIDAY [Interacting]
     Active Substance: FERROUS FUMARATE\MESTRANOL\NORETHINDRONE
     Indication: CONTRACEPTION
     Dosage: 1 DF, DAILY
     Route: 048
     Dates: start: 201401, end: 20141104

REACTIONS (4)
  - Drug interaction [Unknown]
  - Migraine [Recovered/Resolved]
  - Headache [Unknown]
  - Intracranial pressure increased [Unknown]

NARRATIVE: CASE EVENT DATE: 20141026
